FAERS Safety Report 7008920-9 (Version None)
Quarter: 2010Q3

REPORT INFORMATION
  Report Type: 
  Country: None (occurrence: None)
  Receive Date: 20100923
  Receipt Date: 20100517
  Transmission Date: 20110219
  Serious: Yes (Other)
  Sender: FDA-Public Use
  Company Number: US-ASTRAZENECA-2009SE14388

PATIENT
  Age: 16963 Day
  Sex: Female
  Weight: 93.9 kg

DRUGS (4)
  1. SEROQUEL [Suspect]
     Route: 048
     Dates: start: 20071026
  2. PROZAC [Concomitant]
     Dates: start: 20071026, end: 20090420
  3. LITHIUM CARBONATE [Concomitant]
     Dates: start: 20071026, end: 20090420
  4. NEXIUM [Concomitant]
     Dosage: 40 DAILY
     Dates: start: 20090811

REACTIONS (3)
  - DIABETES MELLITUS INADEQUATE CONTROL [None]
  - NEUROPATHY PERIPHERAL [None]
  - TYPE 2 DIABETES MELLITUS [None]
